FAERS Safety Report 8320053-8 (Version None)
Quarter: 2012Q2

REPORT INFORMATION
  Report Type: 
  Country: None (occurrence: None)
  Receive Date: 20120427
  Receipt Date: 20120413
  Transmission Date: 20120825
  Serious: Yes (Other)
  Sender: FDA-Public Use
  Company Number: CHPA2012US009372

PATIENT
  Age: 83 Year
  Sex: Male

DRUGS (2)
  1. PERDIEM OVERNIGHT RELIEF PILLS [Suspect]
     Indication: CONSTIPATION
     Dosage: 2 DF, ONCE/SINGLE
     Route: 048
     Dates: start: 20120412, end: 20120412
  2. ANTIBIOTICS [Concomitant]

REACTIONS (2)
  - CONCOMITANT DISEASE AGGRAVATED [None]
  - BLOOD GLUCOSE INCREASED [None]
